FAERS Safety Report 9056231 (Version 1)
Quarter: 2013Q1

REPORT INFORMATION
  Report Type: Report from Study
  Country: US (occurrence: US)
  Receive Date: 20130205
  Receipt Date: 20130205
  Transmission Date: 20140127
  Serious: No
  Sender: FDA-Public Use
  Company Number: US-VERTEX PHARMACEUTICALS INC.-2013-001522

PATIENT
  Age: 57 None
  Sex: Male

DRUGS (9)
  1. VX-950 (TELAPREVIR) [Suspect]
     Indication: HEPATITIS C
     Dosage: 750 MG, TID
     Route: 048
  2. AMBIEN [Concomitant]
     Dosage: 10 MG, UNK
  3. LANTUS [Concomitant]
     Dosage: 100/ML
  4. METFORMIN [Concomitant]
     Dosage: 750 MG, UNK
  5. VITAMIN B [Concomitant]
  6. FISH OIL [Concomitant]
  7. MULTIVITAMIN [Concomitant]
  8. TYLENOL [Concomitant]
     Dosage: 650 MG, UNK
  9. BABY ASPIRIN [Concomitant]
     Dosage: 81 MG, UNK

REACTIONS (6)
  - Influenza like illness [Unknown]
  - Headache [Unknown]
  - Pain [Unknown]
  - Dry skin [Unknown]
  - Diarrhoea [Unknown]
  - Pruritus [Unknown]
